FAERS Safety Report 4352871-5 (Version None)
Quarter: 2004Q2

REPORT INFORMATION
  Report Type: 
  Country: None (occurrence: None)
  Receive Date: 20040429
  Receipt Date: 20040419
  Transmission Date: 20050107
  Serious: Yes (Death, Hospitalization)
  Sender: FDA-Public Use
  Company Number: US-JNJFOC-20040304672

PATIENT
  Age: 77 Year
  Sex: Male
  Weight: 99.7913 kg

DRUGS (9)
  1. REMICADE [Suspect]
     Indication: RHEUMATOID ARTHRITIS
     Dosage: 400 MG, INTRAVENOUS
     Route: 042
     Dates: start: 20031120
  2. REMICADE [Suspect]
     Indication: RHEUMATOID ARTHRITIS
     Dosage: 400 MG, INTRAVENOUS
     Route: 042
     Dates: start: 20031204
  3. REMICADE [Suspect]
     Indication: RHEUMATOID ARTHRITIS
     Dosage: 400 MG, INTRAVENOUS
     Route: 042
     Dates: start: 20040102
  4. REMICADE [Suspect]
     Dosage: 400 MG, INTRAVENOUS
     Route: 042
  5. REMICADE [Suspect]
     Dosage: 400 MG, INTRAVENOUS
     Route: 042
  6. REMICADE [Suspect]
  7. CELEBREX [Concomitant]
  8. PREDNISONE [Concomitant]
  9. METHOTREXATE SODIUM [Concomitant]

REACTIONS (2)
  - IMMUNOSUPPRESSION [None]
  - PNEUMONITIS CRYPTOCOCCAL [None]
